FAERS Safety Report 14444963 (Version 4)
Quarter: 2020Q1

REPORT INFORMATION
  Report Type: Report from Study
  Country: US (occurrence: US)
  Receive Date: 20180126
  Receipt Date: 20200318
  Transmission Date: 20200409
  Serious: No
  Sender: FDA-Public Use
  Company Number: PHEH2018US003251

PATIENT
  Sex: Female

DRUGS (2)
  1. METHOTREXATE. [Concomitant]
     Active Substance: METHOTREXATE
     Indication: PRODUCT USED FOR UNKNOWN INDICATION
     Dosage: UNK
     Route: 065
  2. COSENTYX [Suspect]
     Active Substance: SECUKINUMAB
     Indication: PRODUCT USED FOR UNKNOWN INDICATION
     Dosage: UNK
     Route: 058

REACTIONS (8)
  - Arthralgia [Unknown]
  - Drug ineffective [Unknown]
  - Inflammation [Unknown]
  - Therapeutic response decreased [Unknown]
  - Psoriasis [Unknown]
  - Influenza [Unknown]
  - Pain [Unknown]
  - Herpes zoster [Unknown]
